FAERS Safety Report 23739513 (Version 2)
Quarter: 2024Q2

REPORT INFORMATION
  Report Type: Spontaneous
  Country: US (occurrence: US)
  Receive Date: 20240413
  Receipt Date: 20240414
  Transmission Date: 20240716
  Serious: Yes (Death, Hospitalization)
  Sender: FDA-Public Use
  Company Number: US-STRIDES ARCOLAB LIMITED-2024SP004098

PATIENT

DRUGS (1)
  1. COLCHICINE [Suspect]
     Active Substance: COLCHICINE
     Indication: Gout
     Dosage: UNK (TOOK ORAL COLCHICINE BOTTLE OF AROUND 40 TABLETS)
     Route: 048

REACTIONS (5)
  - Cardiogenic shock [Fatal]
  - Cardiac arrest [Fatal]
  - Accidental overdose [Fatal]
  - Medication error [Fatal]
  - Toxicity to various agents [Fatal]
